FAERS Safety Report 15538892 (Version 3)
Quarter: 2020Q3

REPORT INFORMATION
  Report Type: Spontaneous
  Country: US (occurrence: US)
  Receive Date: 20181022
  Receipt Date: 20200702
  Transmission Date: 20201102
  Serious: Yes (Life-Threatening, Hospitalization)
  Sender: FDA-Public Use
  Company Number: US-ENDO PHARMACEUTICALS INC-2018-042103

PATIENT
  Sex: Female

DRUGS (1)
  1. GILDESS FE 1.5/30 [Suspect]
     Active Substance: ETHINYL ESTRADIOL\NORETHINDRONE ACETATE
     Indication: PRODUCT USED FOR UNKNOWN INDICATION
     Dosage: UNK UNKNOWN, UNKNOWN
     Route: 065
     Dates: start: 201506

REACTIONS (12)
  - Mental disorder [Unknown]
  - Unevaluable event [Unknown]
  - Impaired work ability [Unknown]
  - Metrorrhagia [Unknown]
  - Stress [Unknown]
  - Drug ineffective [Unknown]
  - Anxiety [Unknown]
  - Skin disorder [Unknown]
  - Emotional distress [Unknown]
  - Menstrual disorder [Unknown]
  - Ill-defined disorder [Unknown]
  - Ruptured ectopic pregnancy [Recovered/Resolved with Sequelae]

NARRATIVE: CASE EVENT DATE: 2016
